FAERS Safety Report 24278424 (Version 1)
Quarter: 2024Q3

REPORT INFORMATION
  Report Type: Spontaneous
  Country: DE (occurrence: None)
  Receive Date: 20240903
  Receipt Date: 20240903
  Transmission Date: 20241017
  Serious: Yes (Death, Hospitalization, Other)
  Sender: ASTRAZENECA
  Company Number: 2024A198404

PATIENT
  Age: 30 Year
  Sex: Female

DRUGS (1)
  1. ACALABRUTINIB [Suspect]
     Active Substance: ACALABRUTINIB
     Route: 048

REACTIONS (15)
  - Brain oedema [Fatal]
  - Ventricular fibrillation [Fatal]
  - Seizure [Fatal]
  - Metastases to bone marrow [Unknown]
  - Staphylococcal bacteraemia [Unknown]
  - Sepsis [Unknown]
  - Pancytopenia [Unknown]
  - Peripartum cardiomyopathy [Unknown]
  - Malignant neoplasm progression [Unknown]
  - Haemophagocytic lymphohistiocytosis [Unknown]
  - Quadriparesis [Unknown]
  - Neutropenic sepsis [Unknown]
  - Lymphopenia [Unknown]
  - Clostridium difficile colitis [Unknown]
  - Exposure during pregnancy [Unknown]

NARRATIVE: CASE EVENT DATE: 20240316
